FAERS Safety Report 10110851 (Version 1)
Quarter: 2014Q2

REPORT INFORMATION
  Report Type: Spontaneous
  Country: US (occurrence: US)
  Receive Date: 20140425
  Receipt Date: 20140425
  Transmission Date: 20141212
  Serious: Yes (Hospitalization)
  Sender: FDA-Public Use
  Company Number: US-JNJFOC-20140414489

PATIENT
  Age: 74 Year
  Sex: Female
  Weight: 42.18 kg

DRUGS (10)
  1. DOXORUBICIN [Suspect]
     Indication: OVARIAN CANCER
     Route: 042
     Dates: start: 20130401, end: 20130603
  2. EC145 [Suspect]
     Indication: OVARIAN CANCER
     Dosage: DAY 1, 3, 5, 15, 17, 19
     Route: 042
     Dates: start: 20130401, end: 20130617
  3. EC20 [Suspect]
     Indication: SINGLE PHOTON EMISSION COMPUTERISED TOMOGRAM
     Dosage: ONCE
     Route: 042
  4. FOLIC ACID [Suspect]
     Indication: SINGLE PHOTON EMISSION COMPUTERISED TOMOGRAM
     Dosage: ONCE
     Route: 042
  5. PLACEBO [Suspect]
     Indication: OVARIAN CANCER
     Dosage: DAY 1, 3, 5, 15, 17, 19
     Route: 042
     Dates: start: 20130401, end: 20130617
  6. AMBIEN [Concomitant]
     Indication: INSOMNIA
     Dosage: EVERY NIGHT AT BEDTIME
     Route: 065
  7. CLONAZEPAM [Concomitant]
     Indication: ANXIETY
     Route: 048
  8. DOCUSATE [Concomitant]
     Indication: CONSTIPATION
     Route: 065
  9. MEGESTROL [Concomitant]
     Indication: DECREASED APPETITE
     Route: 048
  10. NORTRIPTYLINE [Concomitant]
     Indication: DEPRESSION
     Dosage: EVERY NIGHT AT BED TIME
     Route: 065

REACTIONS (1)
  - Urticaria [Recovered/Resolved]
